FAERS Safety Report 10977051 (Version 1)
Quarter: 2015Q2

REPORT INFORMATION
  Report Type: Report from Study
  Country: US (occurrence: US)
  Receive Date: 20150402
  Receipt Date: 20150402
  Transmission Date: 20150821
  Serious: Yes (Death)
  Sender: FDA-Public Use
  Company Number: US-ROCHE-1558628

PATIENT
  Age: 58 Year
  Sex: Male
  Weight: 48.3 kg

DRUGS (17)
  1. MS CONTIN [Concomitant]
     Active Substance: MORPHINE SULFATE
  2. DARVOCET [Concomitant]
     Active Substance: ACETAMINOPHEN\PROPOXYPHENE HYDROCHLORIDE
  3. LEVAQUIN [Concomitant]
     Active Substance: LEVOFLOXACIN
  4. NADOLOL. [Concomitant]
     Active Substance: NADOLOL
  5. PROAIR HFA [Concomitant]
     Active Substance: ALBUTEROL SULFATE
  6. TRAMADOL [Concomitant]
     Active Substance: TRAMADOL
  7. ATIVAN [Concomitant]
     Active Substance: LORAZEPAM
  8. ERLOTINIB [Suspect]
     Active Substance: ERLOTINIB
     Indication: HEPATOCELLULAR CARCINOMA
     Dosage: DATE OF LAST DOSE PRIOR TO EVENT: 10/OCT/2009
     Route: 048
     Dates: start: 20091001, end: 20091010
  9. OXYCODONE [Concomitant]
     Active Substance: OXYCODONE
  10. ZANAFLEX [Concomitant]
     Active Substance: TIZANIDINE HYDROCHLORIDE
  11. DEXAMETHASONE. [Concomitant]
     Active Substance: DEXAMETHASONE
  12. ERLOTINIB [Suspect]
     Active Substance: ERLOTINIB
     Route: 048
     Dates: start: 20091012
  13. BEVACIZUMAB [Suspect]
     Active Substance: BEVACIZUMAB
     Indication: HEPATOCELLULAR CARCINOMA
     Dosage: DATE OF LAST DOSE PRIOR TO EVENT: 01/OCT/2009
     Route: 042
     Dates: start: 20091001
  14. SYMBICORT [Concomitant]
     Active Substance: BUDESONIDE\FORMOTEROL FUMARATE DIHYDRATE
  15. SPIRIVA [Concomitant]
     Active Substance: TIOTROPIUM BROMIDE MONOHYDRATE
  16. CHANTIX [Concomitant]
     Active Substance: VARENICLINE TARTRATE
  17. ALBUTEROL. [Concomitant]
     Active Substance: ALBUTEROL

REACTIONS (1)
  - Disease progression [Fatal]

NARRATIVE: CASE EVENT DATE: 20091013
